FAERS Safety Report 8803373 (Version 2)
Quarter: 2015Q3

REPORT INFORMATION
  Report Type: Report from Study
  Country: US (occurrence: US)
  Receive Date: 20120924
  Receipt Date: 20150731
  Transmission Date: 20151125
  Serious: Yes (Death)
  Sender: FDA-Public Use
  Company Number: US-ROCHE-1093924

PATIENT
  Sex: Male

DRUGS (10)
  1. ZOMETA [Concomitant]
     Active Substance: ZOLEDRONIC ACID
     Route: 042
  2. AVASTIN [Suspect]
     Active Substance: BEVACIZUMAB
     Indication: RENAL CELL CARCINOMA
     Route: 042
  3. BENADRYL [Concomitant]
     Active Substance: DIPHENHYDRAMINE HYDROCHLORIDE
     Route: 042
  4. KADIAN [Concomitant]
     Active Substance: MORPHINE SULFATE
     Route: 065
  5. ARANESP [Concomitant]
     Active Substance: DARBEPOETIN ALFA
     Route: 058
  6. TARCEVA [Suspect]
     Active Substance: ERLOTINIB HYDROCHLORIDE
     Indication: MALIGNANT URINARY TRACT NEOPLASM
     Route: 048
  7. HEPALEAN-LOK [Concomitant]
     Route: 042
  8. AVASTIN [Suspect]
     Active Substance: BEVACIZUMAB
     Indication: MALIGNANT URINARY TRACT NEOPLASM
     Route: 042
  9. TARCEVA [Suspect]
     Active Substance: ERLOTINIB HYDROCHLORIDE
     Indication: RENAL CELL CARCINOMA
     Route: 048
  10. KADIAN [Concomitant]
     Active Substance: MORPHINE SULFATE
     Route: 065

REACTIONS (9)
  - Somnolence [Unknown]
  - Off label use [Unknown]
  - Asthenia [Unknown]
  - Cough [Unknown]
  - Oedema peripheral [Recovered/Resolved]
  - Death [Fatal]
  - Sinus congestion [Unknown]
  - Rash [Unknown]
  - Sinus headache [Unknown]
